FAERS Safety Report 5940845-X (Version None)
Quarter: 2008Q4

REPORT INFORMATION
  Report Type: 
  Country: None (occurrence: None)
  Receive Date: 20081031
  Receipt Date: 20081016
  Transmission Date: 20090506
  Serious: Yes (Hospitalization)
  Sender: FDA-Public Use
  Company Number: 2008US002568

PATIENT
  Age: 50 Year
  Sex: Female

DRUGS (8)
  1. AMEVIVE [Suspect]
     Indication: PSORIASIS
     Dosage: 15 MG, WEEKLY, INTRAMUSCULAR
     Route: 030
     Dates: start: 20080828, end: 20080918
  2. LIPITOR [Concomitant]
  3. PERINDOPRIL ERBUMINE [Concomitant]
  4. ZOLOFT [Concomitant]
  5. SPIROTON [Concomitant]
  6. PREVACID [Concomitant]
  7. VITAMIN B [Concomitant]
  8. CHLORDIAZEPDXIDE (CHLORDIAZEPDXIDE HYDROCHLORIDE) [Concomitant]

REACTIONS (5)
  - COUGH [None]
  - DIZZINESS [None]
  - FEELING COLD [None]
  - HAEMOGLOBIN DECREASED [None]
  - HYPOTENSION [None]
